FAERS Safety Report 6832276-5 (Version None)
Quarter: 2010Q3

REPORT INFORMATION
  Report Type: 
  Country: None (occurrence: None)
  Receive Date: 20100712
  Receipt Date: 20100630
  Transmission Date: 20110219
  Serious: Yes (Other)
  Sender: FDA-Public Use
  Company Number: DE-GILEAD-2010-0029630

PATIENT
  Sex: Male
  Weight: 58.5 kg

DRUGS (23)
  1. CAYSTON [Suspect]
     Indication: BRONCHITIS
     Dates: start: 20100529, end: 20100601
  2. URBASON [Concomitant]
  3. URBASON [Concomitant]
  4. FORADIL [Concomitant]
  5. ATROVENT [Concomitant]
  6. COTRIM [Concomitant]
  7. AMIKACIN [Concomitant]
     Route: 042
     Dates: start: 20100101
  8. MEROPENEM [Concomitant]
     Route: 042
     Dates: start: 20100101
  9. CLARITHROMYCIN [Concomitant]
     Route: 042
     Dates: start: 20100101
  10. SODIUM CHLORIDE 0.9% [Concomitant]
  11. TOBRAMYCIN [Concomitant]
  12. VIANI MITE [Concomitant]
  13. CREON [Concomitant]
     Route: 048
  14. CEFUROXIME [Concomitant]
     Route: 048
  15. COTRIM [Concomitant]
     Route: 048
  16. JODID [Concomitant]
     Route: 048
  17. ADEK [Concomitant]
     Route: 048
  18. N-ACC [Concomitant]
     Route: 048
  19. HUMALOG [Concomitant]
     Route: 058
  20. LEVEMIR [Concomitant]
     Route: 058
  21. CORTISON [Concomitant]
  22. CORTISON [Concomitant]
  23. NASONEX DA [Concomitant]

REACTIONS (8)
  - CHEST DISCOMFORT [None]
  - CHILLS [None]
  - DISTURBANCE IN ATTENTION [None]
  - DYSPNOEA [None]
  - FEELING HOT [None]
  - HAEMOPTYSIS [None]
  - MUSCLE SPASMS [None]
  - PAIN IN EXTREMITY [None]
